FAERS Safety Report 5404691-8 (Version None)
Quarter: 2007Q3

REPORT INFORMATION
  Report Type: 
  Country: None (occurrence: None)
  Receive Date: 20070731
  Receipt Date: 20070718
  Transmission Date: 20080115
  Serious: Yes (Death)
  Sender: FDA-Public Use
  Company Number: 17064

PATIENT
  Age: 11 Year
  Sex: Male

DRUGS (6)
  1. DOXORUBICIN HYDROCHLORIDE [Suspect]
  2. ETOPOSIDE [Suspect]
  3. VINCRISTINE [Suspect]
  4. CYCLOPHOSPHAMIDE [Suspect]
  5. IFOSFAMIDE [Suspect]
  6. EPTACOG [Concomitant]

REACTIONS (3)
  - EPISTAXIS [None]
  - GASTROINTESTINAL HAEMORRHAGE [None]
  - HAEMATURIA [None]
